FAERS Safety Report 6296944-9 (Version None)
Quarter: 2009Q3

REPORT INFORMATION
  Report Type: 
  Country: None (occurrence: None)
  Receive Date: 20090804
  Receipt Date: 20090729
  Transmission Date: 20100115
  Serious: Yes (Hospitalization, Other)
  Sender: FDA-Public Use
  Company Number: US-CELGENEUS-163-50794-09051676

PATIENT
  Sex: Male

DRUGS (56)
  1. VIDAZA [Suspect]
     Indication: ACUTE MYELOID LEUKAEMIA
     Route: 051
     Dates: start: 20090518, end: 20090519
  2. VIDAZA [Suspect]
     Route: 051
     Dates: start: 20090521, end: 20090525
  3. VIDAZA [Suspect]
     Route: 051
     Dates: start: 20090617
  4. VELCADE [Suspect]
     Indication: ACUTE MYELOID LEUKAEMIA
     Dates: start: 20090518, end: 20090530
  5. VELCADE [Suspect]
     Dates: start: 20090617
  6. ACETAMINOPHEN [Concomitant]
     Indication: DRUG USE FOR UNKNOWN INDICATION
     Route: 065
     Dates: start: 20090520, end: 20090520
  7. COZAAR [Concomitant]
     Indication: HYPERTENSION
     Route: 048
     Dates: start: 20090530
  8. COZAAR [Concomitant]
     Route: 048
     Dates: start: 20080326, end: 20090529
  9. PLENDIL [Concomitant]
     Indication: HYPERTENSION
     Route: 048
     Dates: start: 20080811, end: 20090529
  10. FUROSEMIDE [Concomitant]
     Indication: HYPERTENSION
     Route: 048
     Dates: start: 20080326
  11. FUROSEMIDE [Concomitant]
     Route: 051
     Dates: start: 20090520
  12. FUROSEMIDE [Concomitant]
     Route: 051
     Dates: start: 20090521
  13. METOPROLOL TARTRATE [Concomitant]
     Indication: HYPERTENSION
     Route: 048
     Dates: start: 20090530
  14. METOPROLOL TARTRATE [Concomitant]
     Route: 048
     Dates: start: 20080326, end: 20090529
  15. FLUCONAZOLE [Concomitant]
     Indication: ANTI-INFECTIVE THERAPY
     Route: 048
     Dates: start: 20090604
  16. FLUCONAZOLE [Concomitant]
     Route: 048
     Dates: start: 20090528
  17. AVELOX [Concomitant]
     Indication: ANTI-INFECTIVE THERAPY
     Route: 048
     Dates: start: 20090604
  18. AVELOX [Concomitant]
     Route: 048
     Dates: start: 20080326, end: 20080530
  19. VALTREX [Concomitant]
     Indication: ANTI-INFECTIVE THERAPY
     Route: 048
     Dates: start: 20090604, end: 20090607
  20. VALTREX [Concomitant]
     Route: 048
     Dates: start: 20090526
  21. GLUCOPHAGE [Concomitant]
     Route: 048
     Dates: start: 20090530, end: 20090607
  22. GLUCOPHAGE [Concomitant]
     Route: 048
     Dates: start: 20080326, end: 20090529
  23. ONDANSETRON [Concomitant]
     Indication: GASTROINTESTINAL DISORDER
     Route: 048
     Dates: start: 20090519
  24. ONDANSETRON [Concomitant]
     Route: 048
     Dates: start: 20090521
  25. PEPCID [Concomitant]
     Indication: GASTROINTESTINAL DISORDER
     Route: 048
     Dates: start: 20080326, end: 20090607
  26. PEPCID [Concomitant]
     Route: 048
     Dates: start: 20090608
  27. ALLOPURINOL [Concomitant]
     Indication: METABOLIC DISORDER
     Route: 048
     Dates: start: 20090530, end: 20090607
  28. ALLOPURINOL [Concomitant]
     Route: 048
     Dates: start: 20090518, end: 20090529
  29. ALLOPURINOL [Concomitant]
     Route: 048
     Dates: start: 20090520
  30. CALCIUM ACETATE [Concomitant]
     Indication: METABOLIC DISORDER
     Route: 048
     Dates: start: 20090530, end: 20090607
  31. LOPID [Concomitant]
     Indication: METABOLIC DISORDER
     Route: 048
     Dates: start: 20080326, end: 20090607
  32. POTASSIUM CHLORIDE [Concomitant]
     Indication: METABOLIC DISORDER
     Route: 048
     Dates: start: 20090604
  33. SIMVASTATIN [Concomitant]
     Indication: METABOLIC DISORDER
     Route: 048
     Dates: start: 20080326
  34. MULTI-VITAMINS [Concomitant]
     Indication: NUTRITIONAL SUPPORT
     Route: 048
     Dates: start: 20080326
  35. VANCOMYCIN [Concomitant]
     Indication: DRUG USE FOR UNKNOWN INDICATION
     Route: 051
     Dates: start: 20090524
  36. VITAMIN K [Concomitant]
     Indication: DRUG USE FOR UNKNOWN INDICATION
     Route: 048
     Dates: start: 20090520
  37. INSULIN [Concomitant]
     Indication: DRUG USE FOR UNKNOWN INDICATION
     Dosage: SLIDING SCALE
     Route: 058
     Dates: start: 20090520
  38. POTASSIUM PHOSPHATES [Concomitant]
     Indication: DRUG USE FOR UNKNOWN INDICATION
     Route: 051
     Dates: start: 20090520
  39. LOSARTAN POTASSIUM [Concomitant]
     Indication: DRUG USE FOR UNKNOWN INDICATION
     Route: 048
     Dates: start: 20090522
  40. LIDOCAINE [Concomitant]
     Indication: DRUG USE FOR UNKNOWN INDICATION
     Route: 058
     Dates: start: 20090522
  41. SODIUM CHLORIDE [Concomitant]
     Indication: DRUG USE FOR UNKNOWN INDICATION
     Dosage: 75ML/HOUR
     Route: 051
     Dates: start: 20090522
  42. ACETYLCYSTEINE [Concomitant]
     Indication: DRUG USE FOR UNKNOWN INDICATION
     Route: 048
     Dates: start: 20090526
  43. RASBURICASE [Concomitant]
     Route: 051
     Dates: start: 20090520
  44. ACTIVASE [Concomitant]
     Indication: DRUG USE FOR UNKNOWN INDICATION
     Route: 051
     Dates: start: 20090520
  45. CLOTRIMAZOLE [Concomitant]
     Indication: DRUG USE FOR UNKNOWN INDICATION
     Route: 048
     Dates: start: 20090501
  46. DIPHENHYDRAMINE HCL [Concomitant]
     Indication: DRUG USE FOR UNKNOWN INDICATION
     Route: 048
     Dates: start: 20090524
  47. LOPERAMIDE HYDROCHLORIDE [Concomitant]
     Indication: DRUG USE FOR UNKNOWN INDICATION
     Route: 048
     Dates: start: 20090501
  48. SODIUM BICARBONATE [Concomitant]
     Indication: DRUG USE FOR UNKNOWN INDICATION
     Route: 048
     Dates: start: 20090501
  49. LIDOCAINE HCL VISCOUS [Concomitant]
     Indication: DRUG USE FOR UNKNOWN INDICATION
     Route: 048
     Dates: start: 20090501
  50. SUCRALFATE [Concomitant]
     Indication: DRUG USE FOR UNKNOWN INDICATION
     Route: 048
     Dates: start: 20090501
  51. LORAZEPAM [Concomitant]
     Indication: DRUG USE FOR UNKNOWN INDICATION
     Route: 051
     Dates: start: 20090501
  52. MAGNESIUM/ALUM HYDROXIDE [Concomitant]
     Indication: DRUG USE FOR UNKNOWN INDICATION
     Route: 048
     Dates: start: 20090501
  53. DOCUSATE [Concomitant]
     Indication: DRUG USE FOR UNKNOWN INDICATION
     Route: 048
     Dates: start: 20090501
  54. SENNA [Concomitant]
     Indication: DRUG USE FOR UNKNOWN INDICATION
     Route: 048
     Dates: start: 20090501
  55. ZOLPIDEM [Concomitant]
     Indication: DRUG USE FOR UNKNOWN INDICATION
     Route: 048
     Dates: start: 20090501
  56. HYDRALAZINE HCL [Concomitant]
     Indication: DRUG USE FOR UNKNOWN INDICATION
     Route: 051
     Dates: start: 20090501

REACTIONS (2)
  - PNEUMONIA [None]
  - TUMOUR LYSIS SYNDROME [None]
